FAERS Safety Report 7366762-9 (Version None)
Quarter: 2011Q1

REPORT INFORMATION
  Report Type: 
  Country: None (occurrence: None)
  Receive Date: 20110322
  Receipt Date: 20110316
  Transmission Date: 20110831
  Serious: Yes (Other)
  Sender: FDA-Public Use
  Company Number: US-PFIZER INC-2011058567

PATIENT
  Age: 14 Year
  Sex: Male

DRUGS (2)
  1. CIALIS [Concomitant]
     Dosage: UNK
  2. VIAGRA [Suspect]
     Indication: ERECTILE DYSFUNCTION
     Dosage: UNK
     Route: 048
     Dates: start: 20110301

REACTIONS (3)
  - DRUG ADMINISTRATION ERROR [None]
  - PENIS DISORDER [None]
  - HAEMORRHAGE [None]
